FAERS Safety Report 24534231 (Version 1)
Quarter: 2024Q4

REPORT INFORMATION
  Report Type: Spontaneous
  Country: IN (occurrence: IN)
  Receive Date: 20241022
  Receipt Date: 20241022
  Transmission Date: 20250114
  Serious: Yes (Death)
  Sender: PFIZER
  Company Number: IN-PFIZER INC-PV202400135149

PATIENT
  Age: 44 Year
  Sex: Male

DRUGS (7)
  1. MEROPENEM [Suspect]
     Active Substance: MEROPENEM
     Indication: Mycobacterium abscessus infection
     Dosage: UNK
  2. CLARITHROMYCIN [Suspect]
     Active Substance: CLARITHROMYCIN
     Indication: Mycobacterium abscessus infection
     Dosage: UNK
  3. CLARITHROMYCIN [Suspect]
     Active Substance: CLARITHROMYCIN
     Indication: Endocarditis
  4. TEICOPLANIN [Suspect]
     Active Substance: TEICOPLANIN
     Indication: Mycobacterium abscessus infection
     Dosage: UNK
  5. TEICOPLANIN [Suspect]
     Active Substance: TEICOPLANIN
     Indication: Endocarditis
  6. CEFTRIAXONE\SULBACTAM [Suspect]
     Active Substance: CEFTRIAXONE\SULBACTAM
     Indication: Mycobacterium abscessus infection
     Dosage: UNK
  7. CEFTRIAXONE\SULBACTAM [Suspect]
     Active Substance: CEFTRIAXONE\SULBACTAM
     Indication: Endocarditis

REACTIONS (2)
  - Drug ineffective for unapproved indication [Fatal]
  - Off label use [Fatal]
